FAERS Safety Report 21001771 (Version 1)
Quarter: 2022Q2

REPORT INFORMATION
  Report Type: Spontaneous
  Country: US (occurrence: US)
  Receive Date: 20220624
  Receipt Date: 20220624
  Transmission Date: 20220720
  Serious: No
  Sender: FDA-Public Use
  Company Number: US-BioHaven Pharmaceuticals-2022BHV001193

PATIENT
  Sex: Female

DRUGS (1)
  1. NURTEC ODT [Suspect]
     Active Substance: RIMEGEPANT SULFATE
     Indication: Migraine
     Dosage: ONE TABLET AS NEEDED FOR MIGRAINE HEADACHE?PATIENT TOOK ONE DOSE FROM A SAMPLE PACKAGE. PATIENT STAT
     Route: 065
     Dates: start: 20220422

REACTIONS (1)
  - Product packaging quantity issue [Unknown]
